FAERS Safety Report 10168710 (Version 1)
Quarter: 2014Q2

REPORT INFORMATION
  Report Type: Spontaneous
  Country: KR (occurrence: None)
  Receive Date: 20140509
  Receipt Date: 20140509
  Transmission Date: 20141212
  Serious: Yes (Disabling)
  Sender: FDA-Public Use
  Company Number: KR-20140012

PATIENT
  Age: 57 Year
  Sex: Male

DRUGS (4)
  1. LIPIODOL ULTRA FLUID [Suspect]
     Indication: THERAPEUTIC EMBOLISATION
     Route: 013
  2. DOXORUBICIN (DOXORUBICIN) [Suspect]
     Indication: THERAPEUTIC EMBOLISATION
     Route: 013
  3. LAMIVUDINE (LAMIVUDINE) (LAMIVUDINE) [Concomitant]
  4. ADEFOVIR DIPIVOXIL (ADEFOVIR DIPIVOXIL) (ADEFOVIR DIPIVOXIL) [Concomitant]

REACTIONS (4)
  - Paraplegia [None]
  - Off label use [None]
  - Somatoform disorder [None]
  - Spinal cord ischaemia [None]
